FAERS Safety Report 23667846 (Version 4)
Quarter: 2024Q1

REPORT INFORMATION
  Report Type: Spontaneous
  Country: US (occurrence: US)
  Receive Date: 20240325
  Receipt Date: 20240327
  Transmission Date: 20240409
  Serious: No
  Sender: FDA-Public Use
  Company Number: US-JNJFOC-20240337546

PATIENT
  Age: 64 Year
  Sex: Female
  Weight: 45.9 kg

DRUGS (3)
  1. OPSUMIT [Suspect]
     Active Substance: MACITENTAN
     Indication: Pulmonary arterial hypertension
     Dosage: 10MG ONCE DAILY
     Route: 048
     Dates: start: 20231211, end: 20240312
  2. TRACLEER [Suspect]
     Active Substance: BOSENTAN
     Indication: Pulmonary arterial hypertension
     Route: 048
  3. ADCIRCA [Concomitant]
     Active Substance: TADALAFIL

REACTIONS (11)
  - Drug ineffective [Unknown]
  - Illness [Recovering/Resolving]
  - Infection [Recovering/Resolving]
  - Urinary tract infection [Recovering/Resolving]
  - Respiratory tract infection [Recovering/Resolving]
  - Sinusitis [Recovering/Resolving]
  - Ear disorder [Not Recovered/Not Resolved]
  - Fatigue [Recovering/Resolving]
  - Dizziness [Unknown]
  - Product dose omission issue [Unknown]
  - Therapy change [Unknown]

NARRATIVE: CASE EVENT DATE: 20230101
